FAERS Safety Report 20130402 (Version 1)
Quarter: 2021Q4

REPORT INFORMATION
  Report Type: Spontaneous
  Country: IT (occurrence: IT)
  Receive Date: 20211130
  Receipt Date: 20211130
  Transmission Date: 20220303
  Serious: Yes (Other)
  Sender: FDA-Public Use
  Company Number: IT-SA-2019SA154868

PATIENT
  Sex: Male

DRUGS (6)
  1. ETOPOSIDE [Suspect]
     Active Substance: ETOPOSIDE
     Indication: Nephroblastoma
     Dosage: UNK
  2. DOXORUBICIN [Suspect]
     Active Substance: DOXORUBICIN
     Indication: Nephroblastoma
     Dosage: UNK (PREOPERATIVE CHEMOTHERAPY  (SIX WEEKS))
  3. DOXORUBICIN [Suspect]
     Active Substance: DOXORUBICIN
     Dosage: UNK (PREOPERATIVE CHEMOTHERAPY  (SIX WEEKS))
  4. VINCRISTINE SULFATE [Suspect]
     Active Substance: VINCRISTINE SULFATE
     Indication: Nephroblastoma
     Dosage: UNK (PREOPERATIVE CHEMOTHERAPY (SIX WEEKS))
  5. VINCRISTINE SULFATE [Suspect]
     Active Substance: VINCRISTINE SULFATE
     Dosage: UNK (PREOPERATIVE CHEMOTHERAPY (SIX WEEKS))
  6. ACTINOMYCIN D [Suspect]
     Active Substance: DACTINOMYCIN
     Indication: Nephroblastoma
     Dosage: UNK (PREOPERATIVE CHEMOTHERAPY (SIX WEEKS))

REACTIONS (1)
  - Venoocclusive liver disease [Recovered/Resolved]
